FAERS Safety Report 8998379 (Version 1)
Quarter: 2013Q1

REPORT INFORMATION
  Report Type: Spontaneous
  Country: FR (occurrence: FR)
  Receive Date: 20130102
  Receipt Date: 20130102
  Transmission Date: 20140127
  Serious: Yes (Hospitalization, Other)
  Sender: FDA-Public Use
  Company Number: FR-BRISTOL-MYERS SQUIBB COMPANY-17244054

PATIENT
  Age: 81 Year
  Sex: Male

DRUGS (12)
  1. COUMADIN TABS 2 MG [Suspect]
  2. KARDEGIC [Interacting]
     Dosage: KARDEGIC 75MG IS THE STRENGTH
  3. INNOHEP INJ [Suspect]
     Route: 042
     Dates: start: 201201
  4. METOPROLOL [Concomitant]
  5. TRIATEC [Concomitant]
  6. OROCAL D3 [Concomitant]
  7. CORTANCYL [Concomitant]
  8. FLIXOTIDE [Concomitant]
     Dosage: D1F=250
  9. XATRAL [Concomitant]
  10. XYZALL [Concomitant]
  11. SEROPLEX [Concomitant]
  12. MOPRAL [Concomitant]

REACTIONS (5)
  - Abdominal wall haematoma [Recovered/Resolved]
  - Renal failure [Unknown]
  - Drug interaction [Unknown]
  - Anaemia [Unknown]
  - Atrial fibrillation [Unknown]
